FAERS Safety Report 5269172-3 (Version None)
Quarter: 2007Q1

REPORT INFORMATION
  Report Type: 
  Country: None (occurrence: None)
  Receive Date: 20070319
  Receipt Date: 20070316
  Transmission Date: 20070707
  Serious: Yes (Other)
  Sender: FDA-Public Use
  Company Number: BR-SHR-BR-2007-005657

PATIENT
  Sex: Female

DRUGS (2)
  1. YASMIN [Suspect]
     Dosage: 1 TAB(S), UNK
     Route: 048
     Dates: start: 20030101, end: 20040101
  2. YASMIN [Suspect]
     Dosage: 1 TAB(S), UNK
     Route: 048
     Dates: start: 20060701

REACTIONS (6)
  - HEADACHE [None]
  - METASTASES TO BLADDER [None]
  - METASTASES TO GASTROINTESTINAL TRACT [None]
  - METASTASES TO LIVER [None]
  - NAUSEA [None]
  - TERATOMA [None]
